FAERS Safety Report 25473511 (Version 1)
Quarter: 2025Q2

REPORT INFORMATION
  Report Type: Spontaneous
  Country: CA (occurrence: CA)
  Receive Date: 20250624
  Receipt Date: 20250624
  Transmission Date: 20250716
  Serious: Yes (Other)
  Sender: B. BRAUN MEDICAL INC.
  Company Number: None

PATIENT
  Sex: Female

DRUGS (12)
  1. SODIUM CHLORIDE [Suspect]
     Active Substance: SODIUM CHLORIDE
  2. ACER SACCHARUM POLLEN [Suspect]
     Active Substance: ACER SACCHARUM POLLEN
  3. AMARANTHUS RETROFLEXUS POLLEN [Suspect]
     Active Substance: AMARANTHUS RETROFLEXUS POLLEN
  4. BETULA PENDULA POLLEN [Suspect]
     Active Substance: BETULA PENDULA POLLEN
  5. CHENOPODIUM ALBUM POLLEN [Suspect]
     Active Substance: CHENOPODIUM ALBUM POLLEN
  6. FAGUS SYLVATICA NUT [Suspect]
     Active Substance: FAGUS SYLVATICA NUT
  7. FRAXINUS AMERICANA POLLEN [Suspect]
     Active Substance: FRAXINUS AMERICANA POLLEN
  8. JUGLANS NIGRA POLLEN [Suspect]
     Active Substance: JUGLANS NIGRA POLLEN
  9. PLATANUS OCCIDENTALIS POLLEN [Suspect]
     Active Substance: PLATANUS OCCIDENTALIS POLLEN
  10. QUERCUS RUBRA POLLEN [Suspect]
     Active Substance: QUERCUS RUBRA POLLEN
  11. SALIX NIGRA POLLEN [Suspect]
     Active Substance: SALIX NIGRA POLLEN
  12. ULMUS AMERICANA POLLEN [Suspect]
     Active Substance: ULMUS AMERICANA POLLEN

REACTIONS (1)
  - Anaphylactic reaction [Unknown]
